FAERS Safety Report 23466812 (Version 2)
Quarter: 2024Q3

REPORT INFORMATION
  Report Type: Report from Study
  Country: GB (occurrence: GB)
  Receive Date: 20240201
  Receipt Date: 20240822
  Transmission Date: 20241016
  Serious: Yes (Hospitalization, Other)
  Sender: PFIZER
  Company Number: GB-PFIZER INC-202400029768

PATIENT
  Age: 12 Year
  Sex: Female
  Weight: 51.4 kg

DRUGS (3)
  1. LORLATINIB [Suspect]
     Active Substance: LORLATINIB
     Dosage: 100 MG, 1X/DAY
     Route: 048
     Dates: start: 20231212, end: 20240121
  2. COTRIMOXAZOLE [Concomitant]
     Active Substance: SULFAMETHOXAZOLE\TRIMETHOPRIM
     Indication: Antifungal prophylaxis
     Dosage: 480 MG, BD ON STAURDAY AND SUNDAY
     Route: 048
     Dates: start: 20230826
  3. CIPROFLOXACIN [Concomitant]
     Active Substance: CIPROFLOXACIN
     Indication: Cellulitis
     Dosage: 750 MG, 2X/DAY
     Dates: start: 20240104, end: 20240114

REACTIONS (10)
  - Hallucination [Recovered/Resolved]
  - Delirium [Recovered/Resolved]
  - Substance-induced psychotic disorder [Recovered/Resolved]
  - Confusional state [Recovered/Resolved]
  - Personality change [Recovered/Resolved]
  - Aggression [Recovered/Resolved]
  - Nervousness [Unknown]
  - Anxiety [Recovered/Resolved]
  - Poor quality sleep [Unknown]
  - Memory impairment [Recovered/Resolved]

NARRATIVE: CASE EVENT DATE: 20231227
